FAERS Safety Report 5004986-6 (Version None)
Quarter: 2006Q1

REPORT INFORMATION
  Report Type: 
  Country: None (occurrence: None)
  Receive Date: 20060321
  Receipt Date: 20060110
  Transmission Date: 20060701
  Serious: No
  Sender: FDA-Public Use
  Company Number: YPA20050585

PATIENT
  Age: 65 Year
  Sex: Female

DRUGS (1)
  1. VESICARE [Suspect]
     Indication: HYPERTONIC BLADDER
     Dosage: 5 MG, ORAL
     Route: 048
     Dates: start: 20051001

REACTIONS (1)
  - CONSTIPATION [None]
